FAERS Safety Report 22602203 (Version 1)
Quarter: 2023Q2

REPORT INFORMATION
  Report Type: Spontaneous
  Country: None (occurrence: US)
  Receive Date: 20230614
  Receipt Date: 20230614
  Transmission Date: 20230722
  Serious: No
  Sender: FDA-Public Use
  Company Number: US-Mission Pharmacal Company-2142711

PATIENT
  Sex: Female

DRUGS (3)
  1. THIOLA [Suspect]
     Active Substance: TIOPRONIN
     Indication: Cystinuria
     Route: 048
     Dates: start: 20170804
  2. QUESTRAN [Concomitant]
     Active Substance: CHOLESTYRAMINE
  3. ANTIBIOTIC (NON-SPECIFIED) [Concomitant]

REACTIONS (6)
  - Dyspepsia [Unknown]
  - Hypoproteinaemia [Unknown]
  - Amenorrhoea [Unknown]
  - Pneumonia [Unknown]
  - Gastrointestinal disorder [Unknown]
  - Diarrhoea [Unknown]
